FAERS Safety Report 5447327-2 (Version None)
Quarter: 2007Q3

REPORT INFORMATION
  Report Type: 
  Country: None (occurrence: None)
  Receive Date: 20070910
  Receipt Date: 20070906
  Transmission Date: 20080115
  Serious: Yes (Other)
  Sender: FDA-Public Use
  Company Number: JP-BRISTOL-MYERS SQUIBB COMPANY-13873898

PATIENT
  Age: 70 Year
  Sex: Male

DRUGS (4)
  1. BRIPLATIN [Suspect]
     Indication: PLEURAL MESOTHELIOMA MALIGNANT
     Route: 041
     Dates: start: 20070726, end: 20070816
  2. ALIMTA [Suspect]
     Indication: PLEURAL MESOTHELIOMA MALIGNANT
     Route: 042
     Dates: start: 20070726, end: 20070816
  3. PANVITAN [Concomitant]
     Route: 048
  4. DECADRON [Concomitant]
     Route: 048

REACTIONS (3)
  - ANOREXIA [None]
  - GASTRIC ULCER [None]
  - RASH [None]
